FAERS Safety Report 18755580 (Version 1)
Quarter: 2021Q1

REPORT INFORMATION
  Report Type: Spontaneous
  Country: US (occurrence: US)
  Receive Date: 20210119
  Receipt Date: 20210119
  Transmission Date: 20210419
  Serious: No
  Sender: FDA-Public Use
  Company Number: US-HORIZON-2021HZN00429

PATIENT
  Age: 55 Year
  Sex: Female

DRUGS (4)
  1. TEPEZZA [Suspect]
     Active Substance: TEPROTUMUMAB-TRBW
     Indication: HYPERTHYROIDISM
     Dosage: 1800 MG EVERY THREE WEEKS
     Dates: start: 202011
  2. LINZESS 145 MCG CAPSULELINACLOTID [Concomitant]
     Indication: PRODUCT USED FOR UNKNOWN INDICATION
  3. METHIMAZOLE 10 MG TABLETTHIAMAZOL [Concomitant]
     Indication: PRODUCT USED FOR UNKNOWN INDICATION
  4. TRAZODONE HCL 300MG TABLETTRAZODONE [Concomitant]
     Indication: PRODUCT USED FOR UNKNOWN INDICATION

REACTIONS (1)
  - Thyroid disorder [Unknown]
